FAERS Safety Report 8159202-3 (Version None)
Quarter: 2012Q1

REPORT INFORMATION
  Report Type: 
  Country: None (occurrence: None)
  Receive Date: 20120223
  Receipt Date: 20120215
  Transmission Date: 20120608
  Serious: Yes (Hospitalization)
  Sender: FDA-Public Use
  Company Number: US-AMGEN-USASP2012010338

PATIENT
  Age: 55 Year
  Sex: Female

DRUGS (2)
  1. ENBREL [Suspect]
     Indication: PSORIATIC ARTHROPATHY
     Dosage: 50 MG, QWK
     Dates: start: 20090724, end: 20120131
  2. TREXALL [Concomitant]
     Dosage: 1 MG, UNK
     Dates: start: 20120101

REACTIONS (13)
  - HEADACHE [None]
  - HYPERKERATOSIS [None]
  - STRESS URINARY INCONTINENCE [None]
  - EPISTAXIS [None]
  - CONTUSION [None]
  - JOINT DISLOCATION [None]
  - ARTHRALGIA [None]
  - OEDEMA PERIPHERAL [None]
  - JOINT SWELLING [None]
  - SINUSITIS [None]
  - PARANASAL SINUS HYPERSECRETION [None]
  - SNEEZING [None]
  - ONYCHOCLASIS [None]
